FAERS Safety Report 9105133 (Version 2)
Quarter: 2013Q4

REPORT INFORMATION
  Report Type: Report from Study
  Country: CA (occurrence: CA)
  Receive Date: 20130221
  Receipt Date: 20131017
  Transmission Date: 20140711
  Serious: Yes (Other)
  Sender: FDA-Public Use
  Company Number: PHHY2012CA127466

PATIENT
  Age: 42 Year
  Sex: Female

DRUGS (5)
  1. GILENYA [Suspect]
     Indication: RELAPSING-REMITTING MULTIPLE SCLEROSIS
     Dosage: 0.5 MG, QD
     Route: 048
     Dates: start: 20121203
  2. BUPROPION [Concomitant]
     Dosage: 100 MG, QD
     Route: 048
  3. ADVIL//IBUPROFEN [Concomitant]
     Indication: HEADACHE
  4. VIT D [Concomitant]
  5. GRAVOL [Concomitant]

REACTIONS (3)
  - Fatigue [Not Recovered/Not Resolved]
  - Headache [Recovered/Resolved]
  - Blood pressure decreased [Unknown]
